FAERS Safety Report 17948058 (Version 1)
Quarter: 2020Q2

REPORT INFORMATION
  Report Type: Spontaneous
  Country: US (occurrence: US)
  Receive Date: 20200626
  Receipt Date: 20200626
  Transmission Date: 20200714
  Serious: Yes (Hospitalization)
  Sender: FDA-Public Use
  Company Number: None

PATIENT
  Age: 52 Year
  Sex: Female
  Weight: 134.3 kg

DRUGS (1)
  1. TAXOL [Suspect]
     Active Substance: PACLITAXEL
     Dates: end: 20200514

REACTIONS (9)
  - Dyspnoea [None]
  - Urinary tract infection [None]
  - Pneumonia [None]
  - Sinus tachycardia [None]
  - Vomiting [None]
  - Nausea [None]
  - Pleural effusion [None]
  - Deep vein thrombosis [None]
  - Abscess [None]

NARRATIVE: CASE EVENT DATE: 20200607
